FAERS Safety Report 13144762 (Version 1)
Quarter: 2017Q1

REPORT INFORMATION
  Report Type: Spontaneous
  Country: IT (occurrence: IT)
  Receive Date: 20170124
  Receipt Date: 20170124
  Transmission Date: 20170428
  Serious: Yes (Other)
  Sender: FDA-Public Use
  Company Number: IT-ACCORD-046408

PATIENT
  Age: 36 Year
  Sex: Female

DRUGS (4)
  1. OKI DOMPE^ FARMACEUTICI S.P.A. [Suspect]
     Active Substance: KETOPROFEN LYSINE
     Indication: SINUSITIS
     Dosage: STRENGTH: 80 MG,
     Route: 048
     Dates: start: 20161119, end: 20161119
  2. ESOMEPRAZOLE/ESOMEPRAZOLE MAGNESIUM/ESOMEPRAZOLE SODIUM [Suspect]
     Active Substance: ESOMEPRAZOLE
     Indication: PROPHYLAXIS
     Route: 048
     Dates: start: 20161119, end: 20161119
  3. AUGMENTIN [Suspect]
     Active Substance: AMOXICILLIN\CLAVULANATE POTASSIUM
     Indication: SINUSITIS
     Dosage: STRENGTH: 875 MG/125 MG
     Route: 048
     Dates: start: 20161119, end: 20161119
  4. FLUIMUCIL [Suspect]
     Active Substance: ACETYLCYSTEINE
     Indication: SINUSITIS
     Dates: start: 20161119, end: 20161119

REACTIONS (2)
  - Pruritus [Recovering/Resolving]
  - Erythema [Recovering/Resolving]

NARRATIVE: CASE EVENT DATE: 20161119
